FAERS Safety Report 12147909 (Version 2)
Quarter: 2016Q3

REPORT INFORMATION
  Report Type: Report from Study
  Country: DE (occurrence: DE)
  Receive Date: 20160304
  Receipt Date: 20160728
  Transmission Date: 20161109
  Serious: Yes (Death, Other)
  Sender: FDA-Public Use
  Company Number: DE-UCBSA-2016007410

PATIENT
  Age: 57 Year
  Sex: Female
  Weight: 54 kg

DRUGS (13)
  1. CALCIUM W/VITAMIN D [Concomitant]
     Active Substance: CALCIUM\VITAMIN D
     Indication: PRODUCT USED FOR UNKNOWN INDICATION
     Dosage: 2 DF, 2X/DAY (BID)
     Dates: start: 201405
  2. PREDNISOLONE. [Concomitant]
     Active Substance: PREDNISOLONE
     Indication: PRODUCT USED FOR UNKNOWN INDICATION
     Dosage: UNK, STRENGTH 5 MG
     Dates: start: 201405
  3. RAMIPRIL. [Concomitant]
     Active Substance: RAMIPRIL
     Indication: PRODUCT USED FOR UNKNOWN INDICATION
     Dosage: 1 DF, ONCE DAILY (QD), STRENGTH 5 MG
     Dates: start: 201405
  4. FURESIS [Concomitant]
     Active Substance: FUROSEMIDE
     Indication: PRODUCT USED FOR UNKNOWN INDICATION
     Dosage: 1 DF, ONCE DAILY (QD), STRENGTH 40 MG
     Dates: start: 201405
  5. IBUPROFEN. [Concomitant]
     Active Substance: IBUPROFEN
     Indication: PRODUCT USED FOR UNKNOWN INDICATION
     Dosage: 3 DF, 3X/DAY (TID), STRENGTH 400 MG
     Dates: start: 201405
  6. NOVALGIN [Concomitant]
     Active Substance: METAMIZOLE SODIUM
     Indication: PRODUCT USED FOR UNKNOWN INDICATION
     Dosage: UNK UNK, AS NEEDED (PRN), 30 DROPS, MAX 4 TIMES A DAY
     Dates: start: 201405
  7. TRYASOL [Concomitant]
     Indication: COUGH
     Dosage: UNK UNK, AS NEEDED (PRN), 30 DROPS
     Dates: start: 201405
  8. CERTOLIZUMAB PEGOL RA [Suspect]
     Active Substance: CERTOLIZUMAB PEGOL
     Indication: RHEUMATOID ARTHRITIS
     Dosage: 200 MG, UNK
     Dates: start: 201305, end: 201309
  9. PANTOPRAZOLE [Concomitant]
     Active Substance: PANTOPRAZOLE SODIUM
     Indication: PRODUCT USED FOR UNKNOWN INDICATION
     Dosage: 1 DF, ONCE DAILY (QD), STRENGTH 40 MG
     Dates: start: 201405
  10. PANTOZOL [Concomitant]
     Active Substance: PANTOPRAZOLE SODIUM
     Indication: PRODUCT USED FOR UNKNOWN INDICATION
     Dosage: UNK,
     Dates: start: 201405
  11. CALCIUM CARBONATE. [Concomitant]
     Active Substance: CALCIUM CARBONATE
     Indication: PRODUCT USED FOR UNKNOWN INDICATION
     Dosage: UNK
     Dates: start: 201405
  12. FERRO-SANOL DUODENAL [Concomitant]
     Active Substance: FERROUS GLYCINE SULFATE
     Indication: PRODUCT USED FOR UNKNOWN INDICATION
     Dosage: 1 DF, ONCE DAILY (QD), HALF H BEFORE MEAL OR 2 H AFTER MEAL
     Dates: start: 201405
  13. AMLODIPINE [Concomitant]
     Active Substance: AMLODIPINE BESYLATE
     Indication: PRODUCT USED FOR UNKNOWN INDICATION
     Dosage: 1 DF, ONCE DAILY (QD), STRENGTH 5 MG
     Dates: start: 201405

REACTIONS (1)
  - Small cell lung cancer [Fatal]

NARRATIVE: CASE EVENT DATE: 20140115
